FAERS Safety Report 25504332 (Version 1)
Quarter: 2025Q3

REPORT INFORMATION
  Report Type: Spontaneous
  Country: EU (occurrence: EU)
  Receive Date: 20250702
  Receipt Date: 20250702
  Transmission Date: 20251021
  Serious: Yes (Other)
  Sender: AUROBINDO
  Company Number: EU-AFSSAPS-BS2025000449

PATIENT
  Age: 31 Year
  Sex: Female
  Weight: 86 kg

DRUGS (4)
  1. PREDNISONE [Suspect]
     Active Substance: PREDNISONE
     Indication: Severe asthma with fungal sensitisation
     Dosage: 20 MILLIGRAM, ONCE A DAY
     Route: 048
     Dates: start: 2020
  2. XOLAIR [Suspect]
     Active Substance: OMALIZUMAB
     Indication: Severe asthma with fungal sensitisation
     Route: 058
     Dates: start: 20190416
  3. GLYCOPYRROLATE [Suspect]
     Active Substance: GLYCOPYRROLATE
     Indication: Severe asthma with fungal sensitisation
     Dosage: 44 MICROGRAM, ONCE A DAY
     Dates: start: 20200228
  4. FLUTICASONE FUROATE [Suspect]
     Active Substance: FLUTICASONE FUROATE
     Indication: Nasal polyps
     Dosage: 27.5 MICROGRAM, ONCE A DAY
     Route: 045
     Dates: start: 2018

REACTIONS (2)
  - Abortion spontaneous [Recovered/Resolved]
  - Maternal exposure during pregnancy [Recovered/Resolved]

NARRATIVE: CASE EVENT DATE: 20210216
